FAERS Safety Report 23576317 (Version 1)
Quarter: 2024Q1

REPORT INFORMATION
  Report Type: Spontaneous
  Country: DE (occurrence: DE)
  Receive Date: 20240228
  Receipt Date: 20240228
  Transmission Date: 20240410
  Serious: Yes (Other)
  Sender: FDA-Public Use
  Company Number: DE-BIOVITRUM-2024-DE-003043

PATIENT
  Age: 28 Year
  Sex: Female

DRUGS (2)
  1. KINERET [Suspect]
     Active Substance: ANAKINRA
     Indication: Product used for unknown indication
     Dosage: 5MG/BODY WEIGHT SINCE 9 YEAR OF LIFE
  2. KINERET [Suspect]
     Active Substance: ANAKINRA
     Dosage: DAILY

REACTIONS (2)
  - Renal amyloidosis [Unknown]
  - Intentional product misuse [Unknown]
